FAERS Safety Report 8649834 (Version 2)
Quarter: 2012Q4

REPORT INFORMATION
  Report Type: 
  Country: US (occurrence: US)
  Receive Date: 20120705
  Receipt Date: 20120924
  Transmission Date: 20130627
  Serious: Yes (Hospitalization, Disabling)
  Sender: FDA-Public Use
  Company Number: US-BAYER-2012-065959

PATIENT
  Age: 47 Year
  Sex: Female

DRUGS (6)
  1. YAZ [Suspect]
     Dosage: UNK
     Dates: start: 200610, end: 20101012
  2. GIANVI [Suspect]
     Dosage: UNK
     Dates: start: 200610, end: 20101012
  3. SEROQUEL [Concomitant]
     Dosage: 50 mg, BID
     Route: 048
  4. TRAZODONE HYDROCHLORIDE [Concomitant]
     Dosage: 100 mg, daily
     Route: 048
  5. VENLAFAXINE HYDROCHLORIDE [Concomitant]
     Dosage: 75 mg, BID
     Route: 048
  6. CELEBREX [Concomitant]

REACTIONS (7)
  - Deep vein thrombosis [Recovered/Resolved]
  - Pain [Recovered/Resolved]
  - Injury [Recovered/Resolved]
  - Deformity [None]
  - Anxiety [None]
  - Anhedonia [None]
  - Emotional distress [None]
